FAERS Safety Report 18627531 (Version 1)
Quarter: 2020Q4

REPORT INFORMATION
  Report Type: Report from Study
  Country: US (occurrence: US)
  Receive Date: 20201217
  Receipt Date: 20201217
  Transmission Date: 20210114
  Serious: No
  Sender: FDA-Public Use
  Company Number: NVSC2020US333662

PATIENT
  Sex: Male

DRUGS (1)
  1. COSENTYX [Suspect]
     Active Substance: SECUKINUMAB
     Indication: PSORIASIS
     Dosage: 300 UG, EVERY 4 WEEKS
     Route: 058

REACTIONS (3)
  - Skin discolouration [Unknown]
  - Scar [Unknown]
  - Skin exfoliation [Unknown]
